FAERS Safety Report 7747747-7 (Version None)
Quarter: 2011Q3

REPORT INFORMATION
  Report Type: 
  Country: None (occurrence: None)
  Receive Date: 20110913
  Receipt Date: 20110902
  Transmission Date: 20111222
  Serious: Yes (Other)
  Sender: FDA-Public Use
  Company Number: CHPA2011US11949

PATIENT
  Age: 92 Year
  Sex: Female

DRUGS (3)
  1. COLACE [Concomitant]
     Indication: FAECES HARD
     Dosage: 2 DF, QHS
     Route: 048
     Dates: start: 20110801
  2. PERDIEM OVERNIGHT RELIEF PILLS [Suspect]
     Indication: LAXATIVE SUPPORTIVE CARE
     Dosage: UNK DF, UNK
     Route: 048
  3. SENOKOT [Suspect]
     Indication: CONSTIPATION
     Dosage: 2 DF, QD
     Route: 048

REACTIONS (3)
  - INCORRECT DRUG ADMINISTRATION DURATION [None]
  - HERNIA [None]
  - SURGERY [None]
